FAERS Safety Report 7391182-0 (Version None)
Quarter: 2011Q1

REPORT INFORMATION
  Report Type: 
  Country: None (occurrence: None)
  Receive Date: 20110324
  Receipt Date: 20110311
  Transmission Date: 20110831
  Serious: Yes (Other)
  Sender: FDA-Public Use
  Company Number: 1000019358

PATIENT

DRUGS (8)
  1. LISINOPRIL [Concomitant]
  2. SPIRIVA (TIOTROPIUM BROMIDE) (TIOTROPIUM BROMIDE) [Concomitant]
  3. ADCAL-D3 (CALCIUM CARBONATE, CHOLECALCIFEROL) [Concomitant]
  4. BENDROFLUMETHIAZIDE (BENDROFLUMETHIAZID) (BENDROFLUMETHIAZIDE) [Concomitant]
  5. ROFLUMILAST (ROFLUMILAST) (TABLETS) [Suspect]
     Indication: CHRONIC OBSTRUCTIVE PULMONARY DISEASE
     Dosage: 500 MCG (500 MCG, 1 IN 1 D),ORAL
     Route: 048
     Dates: start: 20101217, end: 20101224
  6. OMEPRAZOLE [Concomitant]
  7. SALBUTAMOL (SALBUTAMOL) (SALBUTAMOL) [Concomitant]
  8. SERETIDE (FLUTICASONE, SALMETEROL) (FLUTICASONE, SALMETEROL) [Concomitant]

REACTIONS (2)
  - MALAISE [None]
  - PARANOIA [None]
